FAERS Safety Report 22586157 (Version 1)
Quarter: 2023Q2

REPORT INFORMATION
  Report Type: Spontaneous
  Country: GB (occurrence: GB)
  Receive Date: 20230610
  Receipt Date: 20230610
  Transmission Date: 20230722
  Serious: Yes (Disabling)
  Sender: FDA-Public Use
  Company Number: GB-MHRA-MED-202305271124078740-TDRCF

PATIENT
  Age: 74 Year
  Sex: Female

DRUGS (1)
  1. DIAZEPAM [Suspect]
     Active Substance: DIAZEPAM
     Indication: Poor quality sleep
     Dosage: 10 MILLIGRAM DAILY; AT NIGHT, UNIT DOSE : 10 MG, THERAPY END DATE: NASK
     Route: 065
     Dates: start: 2015

REACTIONS (29)
  - Medication error [Unknown]
  - Muscular weakness [Not Recovered/Not Resolved]
  - Depressed level of consciousness [Not Recovered/Not Resolved]
  - Anhedonia [Not Recovered/Not Resolved]
  - Insomnia [Not Recovered/Not Resolved]
  - Restless legs syndrome [Not Recovered/Not Resolved]
  - Gastritis [Not Recovered/Not Resolved]
  - Depression [Not Recovered/Not Resolved]
  - Irritability [Not Recovered/Not Resolved]
  - Social anxiety disorder [Not Recovered/Not Resolved]
  - Disturbance in sexual arousal [Not Recovered/Not Resolved]
  - Suicidal ideation [Not Recovered/Not Resolved]
  - Skin burning sensation [Not Recovered/Not Resolved]
  - Vision blurred [Not Recovered/Not Resolved]
  - Gastrointestinal pain [Not Recovered/Not Resolved]
  - Constipation [Not Recovered/Not Resolved]
  - Apathy [Not Recovered/Not Resolved]
  - Urine output [Not Recovered/Not Resolved]
  - Panic attack [Not Recovered/Not Resolved]
  - Anxiety [Not Recovered/Not Resolved]
  - Tinnitus [Not Recovered/Not Resolved]
  - Dyspnoea [Not Recovered/Not Resolved]
  - Toothache [Not Recovered/Not Resolved]
  - Dysgeusia [Not Recovered/Not Resolved]
  - Fatigue [Not Recovered/Not Resolved]
  - Appetite disorder [Not Recovered/Not Resolved]
  - Hyperhidrosis [Not Recovered/Not Resolved]
  - Abdominal distension [Not Recovered/Not Resolved]
  - Incorrect product administration duration [Unknown]

NARRATIVE: CASE EVENT DATE: 20230505
